FAERS Safety Report 25987848 (Version 1)
Quarter: 2025Q4

REPORT INFORMATION
  Report Type: Spontaneous
  Country: GB (occurrence: GB)
  Receive Date: 20251103
  Receipt Date: 20251103
  Transmission Date: 20260117
  Serious: Yes (Disabling, Other)
  Sender: HIKMA
  Company Number: None

PATIENT
  Age: 80 Year
  Sex: Female
  Weight: 60 kg

DRUGS (2)
  1. CARBOPLATIN [Suspect]
     Active Substance: CARBOPLATIN
     Indication: Endometrial cancer
     Dosage: 560 MILLIGRAM,CYCLE 1 (13TH DEC 2024) - 560MG
     Route: 065
     Dates: start: 20241213, end: 20250509
  2. ETOPOSIDE [Concomitant]
     Active Substance: ETOPOSIDE
     Indication: Endometrial cancer
     Dosage: UNKNOWN
     Route: 065

REACTIONS (4)
  - Blindness [Not Recovered/Not Resolved]
  - Vision blurred [Not Recovered/Not Resolved]
  - Visual impairment [Not Recovered/Not Resolved]
  - Product use in unapproved indication [Unknown]

NARRATIVE: CASE EVENT DATE: 20250501
